FAERS Safety Report 4886088-2 (Version None)
Quarter: 2006Q1

REPORT INFORMATION
  Report Type: 
  Country: None (occurrence: None)
  Receive Date: 20060120
  Receipt Date: 20050905
  Transmission Date: 20060701
  Serious: Yes (Death, Life-Threatening, Hospitalization)
  Sender: FDA-Public Use
  Company Number: JP-AVENTIS-200512549JP

PATIENT
  Age: 52 Year
  Sex: Male
  Weight: 101.65 kg

DRUGS (8)
  1. TAXOTERE [Suspect]
     Indication: SQUAMOUS CELL CARCINOMA
     Route: 041
     Dates: start: 20040913, end: 20041004
  2. KADIAN [Concomitant]
     Indication: CANCER PAIN
     Route: 048
     Dates: start: 20040902, end: 20041010
  3. CEFAZOLIN SODIUM [Concomitant]
     Indication: INFECTION
     Route: 042
     Dates: start: 20040901, end: 20040908
  4. ALBUMIN (HUMAN) [Concomitant]
     Indication: HYPOPROTEINAEMIA
     Route: 042
     Dates: start: 20041004, end: 20041005
  5. DECADRON [Concomitant]
     Indication: PREMEDICATION
     Dates: start: 20040913, end: 20041004
  6. ZANTAC [Concomitant]
     Indication: PREMEDICATION
     Dosage: DOSE: 1 AMPULE
     Dates: start: 20040913, end: 20041004
  7. CHLOR-TRIMETON [Concomitant]
     Indication: PREMEDICATION
     Dosage: DOSE: 1 AMPULE
     Dates: start: 20040913, end: 20041004
  8. SEROTONE [Concomitant]
     Indication: PREMEDICATION
     Dosage: DOSE: 1AMPULE
     Dates: start: 20040913, end: 20041004

REACTIONS (13)
  - ALANINE AMINOTRANSFERASE INCREASED [None]
  - ASPARTATE AMINOTRANSFERASE INCREASED [None]
  - BLOOD BILIRUBIN INCREASED [None]
  - BLOOD PRESSURE DECREASED [None]
  - BONE MARROW FAILURE [None]
  - DISSEMINATED INTRAVASCULAR COAGULATION [None]
  - EFFUSION [None]
  - HEPATIC FUNCTION ABNORMAL [None]
  - HYPOPROTEINAEMIA [None]
  - INJECTION SITE REACTION [None]
  - RENAL IMPAIRMENT [None]
  - RESPIRATORY FAILURE [None]
  - WHITE BLOOD CELL COUNT DECREASED [None]
